FAERS Safety Report 6097575-6 (Version None)
Quarter: 2009Q1

REPORT INFORMATION
  Report Type: 
  Country: None (occurrence: None)
  Receive Date: 20090227
  Receipt Date: 20081121
  Transmission Date: 20090719
  Serious: No
  Sender: FDA-Public Use
  Company Number: A0758396A

PATIENT
  Age: 45 Year
  Sex: Male

DRUGS (3)
  1. IMITREX [Suspect]
     Indication: MIGRAINE
     Route: 058
  2. IMITREX [Suspect]
     Route: 048
  3. ZOMIG [Suspect]
     Indication: MIGRAINE
     Route: 065

REACTIONS (1)
  - THERAPEUTIC RESPONSE DECREASED [None]
